FAERS Safety Report 7412146-4 (Version None)
Quarter: 2011Q2

REPORT INFORMATION
  Report Type: 
  Country: None (occurrence: None)
  Receive Date: 20110413
  Receipt Date: 20110403
  Transmission Date: 20111010
  Serious: Yes (Hospitalization)
  Sender: FDA-Public Use
  Company Number: CH-AMGEN-CHESP2011014428

PATIENT
  Age: 78 Year
  Sex: Female
  Weight: 108.7 kg

DRUGS (9)
  1. DICLOFENAC [Concomitant]
     Dosage: UNK UNK, PRN
     Route: 048
  2. OXYCODONE [Concomitant]
     Route: 048
  3. CALCIMAGON-D3 [Concomitant]
     Route: 048
  4. ALDACTONE [Concomitant]
     Dosage: 250 MG, UNK
  5. TRANDATE [Concomitant]
     Dosage: 200 MG, UNK
  6. ZANIDIP [Concomitant]
     Dosage: 10 MG, UNK
  7. PROLIA [Suspect]
     Indication: OSTEOPOROSIS POSTMENOPAUSAL
     Dosage: 60 MG, Q6MO
     Route: 058
     Dates: start: 20101215
  8. NOVALGIN                           /00169801/ [Concomitant]
     Dosage: 500 MG, UNK
     Route: 048
  9. MICARDIS [Concomitant]

REACTIONS (2)
  - CONGESTIVE CARDIOMYOPATHY [None]
  - RASH [None]
